FAERS Safety Report 18838846 (Version 2)
Quarter: 2021Q1

REPORT INFORMATION
  Report Type: Spontaneous
  Country: US (occurrence: US)
  Receive Date: 20210203
  Receipt Date: 20210203
  Transmission Date: 20210419
  Serious: Yes (Other)
  Sender: FDA-Public Use
  Company Number: US-PFIZER INC-2021079058

PATIENT

DRUGS (1)
  1. ATORVASTATIN CALCIUM. [Suspect]
     Active Substance: ATORVASTATIN CALCIUM
     Dosage: UNK

REACTIONS (16)
  - Facial bones fracture [Unknown]
  - Limb injury [Unknown]
  - Arthralgia [Unknown]
  - Skull fracture [Unknown]
  - Hypersomnia [Unknown]
  - Arthropathy [Unknown]
  - Muscle rupture [Unknown]
  - Gait disturbance [Unknown]
  - Pain in extremity [Unknown]
  - Visual impairment [Unknown]
  - Anorectal disorder [Unknown]
  - Pain [Unknown]
  - Tendon rupture [Unknown]
  - Dysstasia [Unknown]
  - Mobility decreased [Unknown]
  - Musculoskeletal discomfort [Unknown]
